FAERS Safety Report 23743596 (Version 1)
Quarter: 2024Q2

REPORT INFORMATION
  Report Type: Spontaneous
  Country: US (occurrence: US)
  Receive Date: 20240415
  Receipt Date: 20240415
  Transmission Date: 20240716
  Serious: No
  Sender: FDA-Public Use
  Company Number: US-PIERREL S.P.A.-2023PIR00057

PATIENT
  Age: 46 Year
  Sex: Male
  Weight: 81.633 kg

DRUGS (1)
  1. ORABLOC [Suspect]
     Active Substance: ARTICAINE HYDROCHLORIDE\EPINEPHRINE BITARTRATE
     Indication: Local anaesthesia
     Dosage: 3.6 ML, TWICE
     Dates: start: 20231116, end: 20231116

REACTIONS (2)
  - Drug ineffective [Recovered/Resolved]
  - Product quality issue [Recovered/Resolved]

NARRATIVE: CASE EVENT DATE: 20231116
